FAERS Safety Report 12990219 (Version 5)
Quarter: 2017Q4

REPORT INFORMATION
  Report Type: Report from Study
  Country: FR (occurrence: FR)
  Receive Date: 20161201
  Receipt Date: 20171023
  Transmission Date: 20180320
  Serious: Yes (Hospitalization)
  Sender: FDA-Public Use
  Company Number: FR-ROCHE-1861066

PATIENT
  Age: 50 Year
  Sex: Female
  Weight: 89 kg

DRUGS (7)
  1. COBIMETINIB. [Suspect]
     Active Substance: COBIMETINIB
     Route: 048
     Dates: start: 20170318, end: 20170427
  2. VEMURAFENIB. [Suspect]
     Active Substance: VEMURAFENIB
     Indication: METASTATIC MALIGNANT MELANOMA
     Dosage: CYCLE 2?DATE OF LAST ADMINISTRATION BEFORE SAE 27/NOV/2016?PATIENT HAD RECEIVED CUMULATIVE DOSE OF 8
     Route: 048
     Dates: start: 20161007, end: 20161103
  3. COBIMETINIB. [Suspect]
     Active Substance: COBIMETINIB
     Indication: METASTATIC MALIGNANT MELANOMA
     Dosage: CYCLE 2?DATE OF LAST ADMINISTRATION BEFORE SAE 25/NOV/2016?PATIENT RECEIVED THE CUMULATIVE DOSE OF 2
     Route: 048
     Dates: start: 20161008, end: 20161203
  4. VEMURAFENIB. [Suspect]
     Active Substance: VEMURAFENIB
     Route: 048
     Dates: start: 20161104, end: 20170310
  5. VEMURAFENIB. [Suspect]
     Active Substance: VEMURAFENIB
     Route: 048
     Dates: start: 20170318, end: 20170911
  6. COBIMETINIB. [Suspect]
     Active Substance: COBIMETINIB
     Route: 048
     Dates: start: 20170428, end: 20170911
  7. COBIMETINIB. [Suspect]
     Active Substance: COBIMETINIB
     Route: 048
     Dates: start: 20161207, end: 20170310

REACTIONS (4)
  - Vomiting [Unknown]
  - Small intestinal obstruction [Recovered/Resolved with Sequelae]
  - Pyrexia [Unknown]
  - Fatigue [Unknown]

NARRATIVE: CASE EVENT DATE: 20161128
